FAERS Safety Report 4760159-3 (Version None)
Quarter: 2005Q3

REPORT INFORMATION
  Report Type: 
  Country: None (occurrence: None)
  Receive Date: 20050902
  Receipt Date: 20050824
  Transmission Date: 20060218
  Serious: Yes (Other)
  Sender: FDA-Public Use
  Company Number: IT-ABBOTT-05P-083-0309172-00

PATIENT
  Age: 44 Year
  Sex: Female

DRUGS (2)
  1. CYCLOSPORINE [Suspect]
     Indication: SKIN LESION
     Dates: start: 19980201, end: 19990801
  2. CYCLOSPORINE [Suspect]
     Indication: PSORIASIS

REACTIONS (3)
  - HAIRY CELL LEUKAEMIA [None]
  - PANCYTOPENIA [None]
  - SPLENOMEGALY [None]
